FAERS Safety Report 17370523 (Version 1)
Quarter: 2020Q1

REPORT INFORMATION
  Report Type: Spontaneous
  Country: FR (occurrence: FR)
  Receive Date: 20200205
  Receipt Date: 20200205
  Transmission Date: 20200409
  Serious: Yes (Other)
  Sender: FDA-Public Use
  Company Number: FR-TEVA-2020-FR-1181250

PATIENT
  Age: 25 Year
  Sex: Female

DRUGS (8)
  1. LARGACTIL 25 MG, COMPRIM? PELLICUL? S?CABLE [Concomitant]
     Active Substance: CHLORPROMAZINE HYDROCHLORIDE
     Dosage: 200 MILLIGRAM
     Route: 048
     Dates: start: 20191125
  2. OLANZAPINE MYLAN [Suspect]
     Active Substance: OLANZAPINE
     Indication: MENTAL DISORDER
     Dosage: 20 MILLIGRAM
     Route: 048
     Dates: start: 20191209
  3. TRANXENE [Concomitant]
     Active Substance: CLORAZEPATE DIPOTASSIUM
  4. ZOPICLONE [Concomitant]
     Active Substance: ZOPICLONE
  5. TERALITHE [Concomitant]
     Active Substance: LITHIUM CARBONATE
  6. MACROGOL BIOGARAN [Concomitant]
     Active Substance: POLYETHYLENE GLYCOLS
  7. MIRTAZAPINE. [Suspect]
     Active Substance: MIRTAZAPINE
     Indication: DEPRESSION
     Dosage: PROGRESSIVE DECREASE IN DOSAGE FROM 11/12/2019, UNIT DOSE : 45 MILLIGRAM
     Route: 048
     Dates: start: 20191125, end: 20191230
  8. LAMOTRIGINE. [Concomitant]
     Active Substance: LAMOTRIGINE

REACTIONS (1)
  - Hepatocellular injury [Recovering/Resolving]

NARRATIVE: CASE EVENT DATE: 20200103
